FAERS Safety Report 15426017 (Version 1)
Quarter: 2018Q3

REPORT INFORMATION
  Report Type: Spontaneous
  Country: RO (occurrence: RO)
  Receive Date: 20180925
  Receipt Date: 20180925
  Transmission Date: 20181010
  Serious: Yes (Other)
  Sender: FDA-Public Use
  Company Number: PHHY2018RO104256

PATIENT
  Age: 23 Year
  Sex: Male

DRUGS (4)
  1. FLUDROCORTISONE [Suspect]
     Active Substance: FLUDROCORTISONE
     Indication: 21-HYDROXYLASE DEFICIENCY
     Dosage: 0.1 MG, QD
     Route: 065
  2. HYDROCORTISONE. [Suspect]
     Active Substance: HYDROCORTISONE
     Indication: 21-HYDROXYLASE DEFICIENCY
     Dosage: 20 MG, QD
     Route: 065
  3. DEXAMETHASONE. [Suspect]
     Active Substance: DEXAMETHASONE
     Indication: 21-HYDROXYLASE DEFICIENCY
     Dosage: 0.75 MG, QD
     Route: 065
  4. ALPHA?D3 [Concomitant]
     Indication: 21-HYDROXYLASE DEFICIENCY
     Dosage: 0.5 UG, QD
     Route: 065

REACTIONS (3)
  - Androgen deficiency [Not Recovered/Not Resolved]
  - Bone density decreased [Recovering/Resolving]
  - Testicular disorder [Not Recovered/Not Resolved]
